FAERS Safety Report 10529490 (Version 1)
Quarter: 2014Q4

REPORT INFORMATION
  Report Type: Report from Study
  Country: US (occurrence: US)
  Receive Date: 20141021
  Receipt Date: 20141021
  Transmission Date: 20150528
  Serious: No
  Sender: FDA-Public Use
  Company Number: US-AMGEN-USASL2014079879

PATIENT
  Age: 56 Year
  Sex: Male

DRUGS (2)
  1. CLOBETASOL E [Concomitant]
     Dosage: 0.05 %, UNK
  2. ENBREL [Suspect]
     Active Substance: ETANERCEPT
     Indication: PRODUCT USED FOR UNKNOWN INDICATION
     Dosage: 50 MG, 2 TIMES/WK
     Route: 058

REACTIONS (2)
  - Nasopharyngitis [Unknown]
  - Malaise [Unknown]

NARRATIVE: CASE EVENT DATE: 20130801
